FAERS Safety Report 5649413-0 (Version None)
Quarter: 2008Q1

REPORT INFORMATION
  Report Type: 
  Country: None (occurrence: None)
  Receive Date: 20080304
  Receipt Date: 20070813
  Transmission Date: 20080703
  Serious: No
  Sender: FDA-Public Use
  Company Number: US-BAYER-US-2007-030140

PATIENT
  Age: 46 Year
  Sex: Female
  Weight: 63 kg

DRUGS (3)
  1. MAGNEVIST [Suspect]
     Indication: NUCLEAR MAGNETIC RESONANCE IMAGING
     Dosage: UNIT DOSE: 14 ML
     Route: 042
     Dates: start: 20070728, end: 20070728
  2. TAMOXIFEN [Concomitant]
  3. SYNTHROID [Concomitant]

REACTIONS (2)
  - ERYTHEMA [None]
  - PAIN IN EXTREMITY [None]
